FAERS Safety Report 24265467 (Version 5)
Quarter: 2024Q4

REPORT INFORMATION
  Report Type: Report from Study
  Country: US (occurrence: US)
  Receive Date: 20240829
  Receipt Date: 20241127
  Transmission Date: 20250115
  Serious: No
  Sender: SUNOVION
  Company Number: US-SUMITOMO PHARMA SWITZERLAND GMBH-2024SPA001429

PATIENT

DRUGS (2)
  1. ORGOVYX [Suspect]
     Active Substance: RELUGOLIX
     Indication: Prostate cancer
     Dosage: 360 MG, SINGLE
     Route: 048
     Dates: start: 20240828, end: 20240828
  2. ORGOVYX [Suspect]
     Active Substance: RELUGOLIX
     Dosage: 120 MG, QD
     Route: 048
     Dates: start: 20240829

REACTIONS (11)
  - Road traffic accident [Unknown]
  - Pain [Unknown]
  - Trigger finger [Unknown]
  - Dyspnoea [Unknown]
  - Balance disorder [Unknown]
  - Dysphonia [Unknown]
  - Urinary incontinence [Unknown]
  - Dizziness [Unknown]
  - Back pain [Unknown]
  - Hot flush [Unknown]
  - Product dose omission issue [Unknown]
